FAERS Safety Report 14587281 (Version 1)
Quarter: 2018Q1

REPORT INFORMATION
  Report Type: Spontaneous
  Country: US (occurrence: US)
  Receive Date: 20180228
  Receipt Date: 20180228
  Transmission Date: 20180509
  Serious: Yes (Disabling)
  Sender: FDA-Public Use
  Company Number: None

PATIENT
  Age: 7 Year
  Sex: Male
  Weight: 32.85 kg

DRUGS (6)
  1. MUCINEX [Concomitant]
     Active Substance: GUAIFENESIN
  2. TAMIFLU [Suspect]
     Active Substance: OSELTAMIVIR PHOSPHATE
     Indication: INFLUENZA
     Dosage: QUANTITY:7.5 SYRINGE ML;?
     Route: 048
     Dates: start: 20180227, end: 20180228
  3. CHILDRENS ADVIL [Concomitant]
     Active Substance: IBUPROFEN
  4. GUMMY VITAMINS [Concomitant]
  5. ALBUTEROL NEBULIZER [Concomitant]
     Active Substance: ALBUTEROL
  6. ZINC + ELDERBERRY [Concomitant]

REACTIONS (4)
  - Urticaria [None]
  - Oral pain [None]
  - Skin exfoliation [None]
  - Hypersensitivity [None]

NARRATIVE: CASE EVENT DATE: 20180227
